FAERS Safety Report 4885390-8 (Version None)
Quarter: 2005Q4

REPORT INFORMATION
  Report Type: 
  Country: None (occurrence: None)
  Receive Date: 20051222
  Receipt Date: 20050913
  Transmission Date: 20060501
  Serious: No
  Sender: FDA-Public Use
  Company Number: SP00474

PATIENT
  Age: 51 Year
  Sex: Female
  Weight: 55.7924 kg

DRUGS (4)
  1. XIFAXAN [Suspect]
     Indication: IRRITABLE BOWEL SYNDROME
     Dosage: 200MG/TID, ORAL
     Route: 048
     Dates: start: 20050714
  2. PREVACID (CAPSULES) [Concomitant]
  3. REGLAN [Concomitant]
  4. THYROID TAB [Concomitant]

REACTIONS (1)
  - FLATULENCE [None]
